FAERS Safety Report 4534063-X (Version None)
Quarter: 2004Q4

REPORT INFORMATION
  Report Type: 
  Country: None (occurrence: None)
  Receive Date: 20041221
  Receipt Date: 20041221
  Transmission Date: 20050328
  Serious: Yes (Other)
  Sender: FDA-Public Use
  Company Number: None

PATIENT
  Age: 76 Year
  Sex: Male
  Weight: 75.3 kg

DRUGS (7)
  1. TERAZOSIN [Suspect]
  2. SYNTHROID [Concomitant]
  3. SIMVASTATIN [Concomitant]
  4. METOPROLOL SUCCINATE [Concomitant]
  5. NITROGLYCERIN [Concomitant]
  6. MELOXICAM [Concomitant]
  7. TRAMADOL HCL [Concomitant]

REACTIONS (1)
  - HYPOTENSION [None]
